FAERS Safety Report 19124093 (Version 1)
Quarter: 2021Q2

REPORT INFORMATION
  Report Type: Report from Study
  Country: US (occurrence: US)
  Receive Date: 20210413
  Receipt Date: 20210413
  Transmission Date: 20210717
  Serious: No
  Sender: FDA-Public Use
  Company Number: US-ACADIA PHARMACEUTICALS INC.-ACA-2021-PIM-001093

PATIENT
  Age: 66 Year
  Sex: Female
  Weight: 71 kg

DRUGS (11)
  1. NUPLAZID [Suspect]
     Active Substance: PIMAVANSERIN TARTRATE
     Indication: DELUSION
  2. LAMOTRIGINE. [Concomitant]
     Active Substance: LAMOTRIGINE
     Dosage: 200 MILLIGRAM, TID
  3. REXULTI [Concomitant]
     Active Substance: BREXPIPRAZOLE
     Dosage: 4MG, IN MORNING
  4. WELLBUTRIN [Concomitant]
     Active Substance: BUPROPION HYDROCHLORIDE
     Dosage: 300 MILLIGRAM, QD ONCE DAILY IN THE MORNING
  5. NUPLAZID [Suspect]
     Active Substance: PIMAVANSERIN TARTRATE
     Indication: PARKINSON^S DISEASE PSYCHOSIS
     Dosage: 34 MILLIGRAM, QD
     Route: 048
     Dates: start: 20210318, end: 20210319
  6. ZYRTEC [Concomitant]
     Active Substance: CETIRIZINE HYDROCHLORIDE
     Dosage: 10 MILLIGRAM, QD
  7. MELATONIN [Concomitant]
     Active Substance: MELATONIN
     Dosage: 10 MILLIGRAM AT BEDTIME
  8. BUSPIRONE [Concomitant]
     Active Substance: BUSPIRONE HYDROCHLORIDE
     Dosage: 5 MILLIGRAM, TID
  9. FINAFLEX [Concomitant]
     Dosage: UNK, QD BEDTIME
  10. NUPLAZID [Suspect]
     Active Substance: PIMAVANSERIN TARTRATE
     Indication: HALLUCINATION
  11. BENZTROPINE [BENZATROPINE] [Concomitant]
     Active Substance: BENZTROPINE
     Dosage: 0.5 MG TID

REACTIONS (10)
  - Hallucination [Recovering/Resolving]
  - Swelling face [Recovering/Resolving]
  - Dysstasia [Recovering/Resolving]
  - Irritability [Recovering/Resolving]
  - Confusional state [Recovering/Resolving]
  - Gait disturbance [Not Recovered/Not Resolved]
  - Hallucination, visual [Unknown]
  - Dizziness [Recovering/Resolving]
  - Delusion [Recovering/Resolving]
  - Disorientation [Unknown]

NARRATIVE: CASE EVENT DATE: 202103
